FAERS Safety Report 9105665 (Version 2)
Quarter: 2013Q2

REPORT INFORMATION
  Report Type: Spontaneous
  Country: US (occurrence: US)
  Receive Date: 20130220
  Receipt Date: 20130416
  Transmission Date: 20140414
  Serious: No
  Sender: FDA-Public Use
  Company Number: US-009507513-1302USA004370

PATIENT
  Age: 25 Year
  Sex: Female
  Weight: 90.7 kg

DRUGS (3)
  1. IMPLANON [Suspect]
     Indication: CONTRACEPTION
     Dosage: IMPLANT WAS INSERTED LAST YEAR
     Dates: start: 20120713
  2. AMOXICILLIN [Concomitant]
     Dosage: UNK, Q6H
  3. VITAMINS (UNSPECIFIED) [Concomitant]

REACTIONS (7)
  - Urine output increased [Unknown]
  - Adverse event [Unknown]
  - Drug interaction [Unknown]
  - Abdominal discomfort [Unknown]
  - Back pain [Unknown]
  - Unintended pregnancy [Unknown]
  - Therapeutic response decreased [Unknown]
